FAERS Safety Report 14963868 (Version 1)
Quarter: 2018Q2

REPORT INFORMATION
  Report Type: Spontaneous
  Country: FR (occurrence: FR)
  Receive Date: 20180601
  Receipt Date: 20180601
  Transmission Date: 20180711
  Serious: Yes (Congenital Anomaly)
  Sender: FDA-Public Use
  Company Number: FR-PFIZER INC-2018216496

PATIENT
  Sex: Male
  Weight: 3 kg

DRUGS (2)
  1. SKENAN [Suspect]
     Active Substance: MORPHINE SULFATE
     Indication: ABDOMINAL PAIN
     Dosage: 50 MG, ALTERNATE DAY
     Route: 064
     Dates: start: 20160417, end: 20161225
  2. GABAPENTIN. [Suspect]
     Active Substance: GABAPENTIN
     Dosage: 1200 MG, UNK
     Route: 064
     Dates: start: 20160612, end: 20161225

REACTIONS (2)
  - Dysmorphism [Not Recovered/Not Resolved]
  - Maternal exposure during pregnancy [Unknown]

NARRATIVE: CASE EVENT DATE: 20161225
